FAERS Safety Report 5103512-0 (Version None)
Quarter: 2006Q3

REPORT INFORMATION
  Report Type: 
  Country: None (occurrence: None)
  Receive Date: 20060913
  Receipt Date: 20060904
  Transmission Date: 20061208
  Serious: Yes (Death)
  Sender: FDA-Public Use
  Company Number: BR-JNJFOC-20060900950

PATIENT
  Age: 28 Year
  Sex: Male
  Weight: 70 kg

DRUGS (5)
  1. HALDOL [Suspect]
     Indication: AGGRESSION
     Route: 050
  2. DIGOXIN [Concomitant]
     Indication: CARDIAC DISORDER
     Route: 048
  3. CAPTOPRIL [Concomitant]
     Indication: HYPERTENSION
     Route: 048
  4. INSULIN [Concomitant]
     Indication: DIABETES MELLITUS
  5. FENERGAN [Concomitant]

REACTIONS (1)
  - ANAPHYLACTIC REACTION [None]
